FAERS Safety Report 23771895 (Version 1)
Quarter: 2024Q2

REPORT INFORMATION
  Report Type: Spontaneous
  Country: US (occurrence: US)
  Receive Date: 20240423
  Receipt Date: 20240423
  Transmission Date: 20240716
  Serious: No
  Sender: FDA-Public Use
  Company Number: SCLX2400024

PATIENT
  Sex: Male

DRUGS (4)
  1. ZTLIDO [Suspect]
     Active Substance: LIDOCAINE
     Indication: Pain
     Dosage: 1 DOSAGE FORM, SINGLE-DOSE TOPICAL SYSTEM UNK
     Route: 061
     Dates: end: 20240208
  2. ZTLIDO [Suspect]
     Active Substance: LIDOCAINE
     Indication: Amputation stump pain
     Dosage: 1 DOSAGE FORM, SINGLE-DOSE TOPICAL SYSTEM UNK
     Route: 061
     Dates: start: 20240209
  3. HYDROCODONE [Concomitant]
     Active Substance: HYDROCODONE
     Indication: Product used for unknown indication
     Dosage: UNK, UNK
     Route: 065
  4. OXYCODONE [Concomitant]
     Active Substance: OXYCODONE\OXYCODONE HYDROCHLORIDE
     Indication: Product used for unknown indication
     Dosage: UNK, UNK
     Route: 065

REACTIONS (2)
  - Off label use [Not Recovered/Not Resolved]
  - Product dose omission issue [Not Recovered/Not Resolved]
